FAERS Safety Report 4558131-1 (Version None)
Quarter: 2005Q1

REPORT INFORMATION
  Report Type: 
  Country: None (occurrence: None)
  Receive Date: 20050121
  Receipt Date: 20041021
  Transmission Date: 20050727
  Serious: Yes (Other)
  Sender: FDA-Public Use
  Company Number: 200420577GDDC

PATIENT
  Age: 11 Year
  Sex: Male

DRUGS (3)
  1. LANTUS [Suspect]
     Dosage: DOSE UNIT: UNITS
     Route: 058
     Dates: start: 20040817, end: 20040909
  2. ACTRAPID [Concomitant]
     Dosage: DOSE: 12-18; DOSE UNIT: UNITS
     Route: 058
  3. MIXTARD HUMAN 70/30 [Concomitant]
     Dosage: DOSE: 4-6; DOSE UNIT: UNITS
     Route: 058

REACTIONS (1)
  - ALOPECIA [None]
